FAERS Safety Report 7187339-4 (Version None)
Quarter: 2010Q4

REPORT INFORMATION
  Report Type: 
  Country: None (occurrence: None)
  Receive Date: 20101222
  Receipt Date: 20101213
  Transmission Date: 20110411
  Serious: Yes (Hospitalization, Disabling, Other)
  Sender: FDA-Public Use
  Company Number: US-MERCK-0711USA00179

PATIENT
  Age: 50 Year
  Sex: Female
  Weight: 82 kg

DRUGS (2)
  1. MAXALT [Suspect]
     Indication: MIGRAINE
     Route: 048
     Dates: start: 20070529, end: 20070529
  2. NARCAN [Suspect]
     Route: 042

REACTIONS (3)
  - CONVULSION [None]
  - DRUG INTERACTION [None]
  - ELECTROCARDIOGRAM T WAVE ABNORMAL [None]
